FAERS Safety Report 19787173 (Version 1)
Quarter: 2021Q3

REPORT INFORMATION
  Report Type: Spontaneous
  Country: PT (occurrence: PT)
  Receive Date: 20210903
  Receipt Date: 20210903
  Transmission Date: 20211014
  Serious: Yes (Hospitalization)
  Sender: FDA-Public Use
  Company Number: PT-PFM-2021-08444

PATIENT

DRUGS (10)
  1. PROPRANOLOL [Suspect]
     Active Substance: PROPRANOLOL HYDROCHLORIDE
     Indication: HYPERTENSION
     Dosage: 120 MILLIGRAM, QD
     Route: 065
  2. VINCRISTINE [Concomitant]
     Active Substance: VINCRISTINE
     Indication: NEUROBLASTOMA
     Dosage: UNK
     Route: 065
     Dates: start: 2011, end: 201307
  3. PHENOXYBENZAMINE [Suspect]
     Active Substance: PHENOXYBENZAMINE
     Indication: HYPERTENSION
     Dosage: 100 MILLIGRAM, QD
     Route: 065
  4. AMIODARONE [Suspect]
     Active Substance: AMIODARONE
     Indication: HYPERTENSION
     Dosage: 200 MILLIGRAM, QD
     Route: 065
  5. AMLODIPINE [Suspect]
     Active Substance: AMLODIPINE BESYLATE
     Indication: HYPERTENSION
     Dosage: 10 MILLIGRAM, QD
     Route: 065
  6. IOBENGUANE (123 I) [Concomitant]
     Active Substance: IOBENGUANE I-123
     Indication: NEUROBLASTOMA
     Dosage: UNK
     Route: 065
     Dates: start: 201406
  7. PROPRANOLOL [Suspect]
     Active Substance: PROPRANOLOL HYDROCHLORIDE
     Indication: OFF LABEL USE
  8. DOXORUBICIN [Concomitant]
     Active Substance: DOXORUBICIN
     Indication: NEUROBLASTOMA
     Dosage: UNK
     Route: 065
     Dates: start: 2011, end: 201307
  9. TOPOTECAN [Concomitant]
     Active Substance: TOPOTECAN HYDROCHLORIDE
     Indication: NEUROBLASTOMA
     Dosage: UNK
     Route: 065
     Dates: start: 2011, end: 201307
  10. CYCLOPHOSPHAMIDE. [Concomitant]
     Active Substance: CYCLOPHOSPHAMIDE
     Indication: NEUROBLASTOMA
     Dosage: UNK
     Route: 065
     Dates: start: 2011, end: 201307

REACTIONS (4)
  - Off label use [Unknown]
  - Drug ineffective [Unknown]
  - Product use issue [Unknown]
  - Overdose [Unknown]
